FAERS Safety Report 5156166-1 (Version None)
Quarter: 2006Q4

REPORT INFORMATION
  Report Type: 
  Country: None (occurrence: None)
  Receive Date: 20061122
  Receipt Date: 20061110
  Transmission Date: 20070319
  Serious: Yes (Other)
  Sender: FDA-Public Use
  Company Number: CA-ELI_LILLY_AND_COMPANY-CA200611003453

PATIENT
  Age: 80 Year
  Sex: Female

DRUGS (9)
  1. EVISTA [Suspect]
     Indication: OSTEOPOROSIS
     Dosage: UNK, UNK
  2. EVISTA [Suspect]
     Dosage: 60 MG, OTHER
     Route: 048
     Dates: start: 20060501
  3. CALCIUM CARBONATE [Concomitant]
  4. VITAMIN D [Concomitant]
  5. TIOTROPIUM BROMIDE [Concomitant]
  6. SALBUTAMOL [Concomitant]
  7. BUDESONIDE W/FORMOTEROL FUMARATE [Concomitant]
  8. FLUTICASONE PROPIONATE [Concomitant]
  9. NITRAZEPAM [Concomitant]

REACTIONS (3)
  - BREAST ENLARGEMENT [None]
  - FRACTURE [None]
  - THROMBOSIS [None]
